FAERS Safety Report 17912327 (Version 3)
Quarter: 2023Q2

REPORT INFORMATION
  Report Type: Spontaneous
  Country: US (occurrence: US)
  Receive Date: 20200618
  Receipt Date: 20230522
  Transmission Date: 20230721
  Serious: No
  Sender: FDA-Public Use
  Company Number: US-SA-2020SA152251

PATIENT
  Age: 19 Year
  Sex: Male
  Weight: 55.782 kg

DRUGS (6)
  1. DUPIXENT [Suspect]
     Active Substance: DUPILUMAB
     Indication: Dermatitis atopic
     Dosage: 300 MG, QOW
     Route: 058
     Dates: start: 20200402
  2. PREDNISOLONE [Concomitant]
     Active Substance: PREDNISOLONE
  3. METHYLPREDNISOLONE [Concomitant]
     Active Substance: METHYLPREDNISOLONE
  4. PROAIR HFA [Concomitant]
     Active Substance: ALBUTEROL SULFATE
  5. OSELTAMIVIR [Concomitant]
     Active Substance: OSELTAMIVIR
  6. PREDNISONE [Concomitant]
     Active Substance: PREDNISONE

REACTIONS (3)
  - Ocular hyperaemia [Not Recovered/Not Resolved]
  - Product prescribing issue [Unknown]
  - Inappropriate schedule of product administration [Unknown]

NARRATIVE: CASE EVENT DATE: 20200401
